FAERS Safety Report 25127294 (Version 1)
Quarter: 2025Q1

REPORT INFORMATION
  Report Type: Spontaneous
  Country: US (occurrence: US)
  Receive Date: 20250327
  Receipt Date: 20250327
  Transmission Date: 20250409
  Serious: Yes (Other)
  Sender: COOPERSURGICAL
  Company Number: US-COOPERSURGICAL, INC.-2025CPS002073

PATIENT
  Sex: Female
  Weight: 67.12 kg

DRUGS (1)
  1. PARAGARD T 380A [Suspect]
     Active Substance: COPPER
     Indication: Contraception
     Route: 015
     Dates: start: 201505

REACTIONS (19)
  - Reproductive complication associated with device [Unknown]
  - Abortion induced [Recovered/Resolved]
  - Pregnancy with contraceptive device [Recovered/Resolved]
  - Drug ineffective [Unknown]
  - Hormone level abnormal [Unknown]
  - Blood prolactin increased [Unknown]
  - Fatigue [Unknown]
  - Anxiety [Unknown]
  - Depression [Unknown]
  - Alopecia [Unknown]
  - Weight increased [Unknown]
  - Migraine [Unknown]
  - Muscular weakness [Unknown]
  - Breast tenderness [Unknown]
  - Device dislocation [Recovered/Resolved]
  - Rash [Unknown]
  - Pain [Recovered/Resolved]
  - Muscle spasms [Not Recovered/Not Resolved]
  - Menstruation irregular [Unknown]

NARRATIVE: CASE EVENT DATE: 20150101
